FAERS Safety Report 20174254 (Version 5)
Quarter: 2022Q1

REPORT INFORMATION
  Report Type: Spontaneous
  Country: PL (occurrence: PL)
  Receive Date: 20211213
  Receipt Date: 20220304
  Transmission Date: 20220423
  Serious: Yes (Other)
  Sender: FDA-Public Use
  Company Number: PL-002147023-NVSC2021PL271842

PATIENT
  Age: 88 Year
  Sex: Male

DRUGS (43)
  1. APIXABAN [Suspect]
     Active Substance: APIXABAN
     Indication: Cerebrovascular accident prophylaxis
     Dosage: 2.5 MILLIGRAM, BID
     Route: 065
     Dates: start: 201810
  2. APIXABAN [Suspect]
     Active Substance: APIXABAN
     Dosage: 2.5 MILLIGRAM, BID
     Route: 065
     Dates: start: 201910
  3. APIXABAN [Suspect]
     Active Substance: APIXABAN
     Dosage: 2.5 MILLIGRAM, BID
     Route: 065
     Dates: start: 20211112
  4. TORSEMIDE [Suspect]
     Active Substance: TORSEMIDE
     Indication: Product used for unknown indication
     Dosage: 10 MG, QD, IN THE MORNING
     Route: 065
     Dates: start: 201810
  5. TORSEMIDE [Suspect]
     Active Substance: TORSEMIDE
     Dosage: 15 MILLIGRAM, QD
     Route: 065
     Dates: start: 201810
  6. TORSEMIDE [Suspect]
     Active Substance: TORSEMIDE
     Dosage: 10 MILLIGRAM, QD
     Route: 065
     Dates: start: 201910
  7. TORSEMIDE [Suspect]
     Active Substance: TORSEMIDE
     Dosage: 15 MILLIGRAM, QD
     Route: 065
     Dates: start: 201910
  8. TORSEMIDE [Suspect]
     Active Substance: TORSEMIDE
     Dosage: 10 MILLIGRAM, BID
     Route: 065
     Dates: start: 202109
  9. TORSEMIDE [Suspect]
     Active Substance: TORSEMIDE
     Dosage: 10 MILLIGRAM, BID
     Route: 065
     Dates: start: 20211112
  10. ASPIRIN [Suspect]
     Active Substance: ASPIRIN
     Indication: Product used for unknown indication
     Dosage: 2.5 MG, BID
     Route: 065
     Dates: start: 201810
  11. ROSUVASTATIN CALCIUM [Suspect]
     Active Substance: ROSUVASTATIN CALCIUM
     Indication: Product used for unknown indication
     Dosage: 10 MILLIGRAM, QD
     Route: 065
     Dates: start: 201910
  12. ROSUVASTATIN CALCIUM [Suspect]
     Active Substance: ROSUVASTATIN CALCIUM
     Dosage: 10 MILLIGRAM, QD
     Route: 065
     Dates: start: 202109
  13. ROSUVASTATIN CALCIUM [Suspect]
     Active Substance: ROSUVASTATIN CALCIUM
     Dosage: 20 MILLIGRAM, QD
     Route: 065
     Dates: start: 20211112
  14. ATORVASTATIN CALCIUM [Suspect]
     Active Substance: ATORVASTATIN CALCIUM
     Indication: Product used for unknown indication
     Dosage: UNK
     Route: 065
  15. ATORVASTATIN CALCIUM [Suspect]
     Active Substance: ATORVASTATIN CALCIUM
     Indication: Product used for unknown indication
     Dosage: 40 MILLIGRAM, QD
     Route: 065
     Dates: start: 201810
  16. ATORVASTATIN CALCIUM [Suspect]
     Active Substance: ATORVASTATIN CALCIUM
     Dosage: 40 MILLIGRAM, QD
     Route: 065
     Dates: start: 201910
  17. PANTOPRAZOLE SODIUM [Suspect]
     Active Substance: PANTOPRAZOLE SODIUM
     Indication: Product used for unknown indication
     Dosage: 20 MILLIGRAM, QD
     Route: 065
     Dates: start: 201810
  18. PANTOPRAZOLE SODIUM [Suspect]
     Active Substance: PANTOPRAZOLE SODIUM
     Dosage: 20 MILLIGRAM, QD
     Route: 065
     Dates: start: 201910
  19. PANTOPRAZOLE SODIUM [Suspect]
     Active Substance: PANTOPRAZOLE SODIUM
     Dosage: 10 MILLIGRAM, QD
     Route: 065
     Dates: start: 202109
  20. PANTOPRAZOLE SODIUM [Suspect]
     Active Substance: PANTOPRAZOLE SODIUM
     Dosage: 20 MILLIGRAM, QD
     Route: 065
     Dates: start: 20211112
  21. RAMIPRIL [Suspect]
     Active Substance: RAMIPRIL
     Indication: Product used for unknown indication
     Dosage: 2.5 MILLIGRAM, BID
     Route: 065
  22. RAMIPRIL [Suspect]
     Active Substance: RAMIPRIL
     Dosage: 2.5 MILLIGRAM, QD
     Route: 065
  23. RAMIPRIL [Suspect]
     Active Substance: RAMIPRIL
     Dosage: 5 MILLIGRAM, QD
     Route: 065
  24. SACUBITRIL\VALSARTAN [Suspect]
     Active Substance: SACUBITRIL\VALSARTAN
     Indication: Product used for unknown indication
     Dosage: 24/26 MG
     Route: 065
     Dates: start: 201810
  25. SACUBITRIL\VALSARTAN [Suspect]
     Active Substance: SACUBITRIL\VALSARTAN
     Dosage: 2 DOSAGE FORM (49/51 MG), BID
     Route: 065
     Dates: start: 201911
  26. SACUBITRIL\VALSARTAN [Suspect]
     Active Substance: SACUBITRIL\VALSARTAN
     Dosage: 24/26 MG
     Route: 065
     Dates: start: 202109
  27. SACUBITRIL\VALSARTAN [Suspect]
     Active Substance: SACUBITRIL\VALSARTAN
     Dosage: 24/26 MG BID
     Route: 065
     Dates: start: 20211112
  28. METOPROLOL TARTRATE [Suspect]
     Active Substance: METOPROLOL TARTRATE
     Indication: Product used for unknown indication
     Dosage: 25 MILLIGRAM, TID
     Route: 065
     Dates: start: 201810
  29. METOPROLOL TARTRATE [Suspect]
     Active Substance: METOPROLOL TARTRATE
     Dosage: 50 -25 -25 MG
     Route: 065
     Dates: start: 201810
  30. METOPROLOL TARTRATE [Suspect]
     Active Substance: METOPROLOL TARTRATE
     Dosage: 25 MILLIGRAM, TID
     Route: 065
     Dates: start: 201910
  31. METOPROLOL TARTRATE [Suspect]
     Active Substance: METOPROLOL TARTRATE
     Dosage: 100 MILLIGRAM, BID
     Route: 065
     Dates: start: 201911
  32. METOPROLOL TARTRATE [Suspect]
     Active Substance: METOPROLOL TARTRATE
     Dosage: 5 MILLIGRAM, QD
     Route: 065
     Dates: start: 20211112
  33. EPLERENONE [Suspect]
     Active Substance: EPLERENONE
     Indication: Product used for unknown indication
     Dosage: 25 MILLIGRAM, QD
     Route: 065
     Dates: start: 201810
  34. EPLERENONE [Suspect]
     Active Substance: EPLERENONE
     Dosage: 50 MILLIGRAM, QD
     Route: 065
     Dates: start: 201910
  35. EPLERENONE [Suspect]
     Active Substance: EPLERENONE
     Dosage: 25 MILLIGRAM, QD
     Route: 065
     Dates: start: 202109
  36. EPLERENONE [Suspect]
     Active Substance: EPLERENONE
     Dosage: 25 MILLIGRAM, QD
     Route: 065
     Dates: start: 20211112
  37. FUROSEMIDE [Suspect]
     Active Substance: FUROSEMIDE
     Indication: Product used for unknown indication
     Dosage: 50 MILLIGRAM, QD
     Route: 065
  38. FUROSEMIDE [Suspect]
     Active Substance: FUROSEMIDE
     Dosage: 40 MILLIGRAM, BID
     Route: 065
     Dates: start: 201810
  39. FUROSEMIDE [Suspect]
     Active Substance: FUROSEMIDE
     Dosage: 40 MILLIGRAM, QD
     Route: 065
     Dates: start: 201910
  40. FUROSEMIDE [Suspect]
     Active Substance: FUROSEMIDE
     Dosage: 40 MILLIGRAM, BID
     Route: 065
     Dates: start: 201910
  41. FUROSEMIDE [Suspect]
     Active Substance: FUROSEMIDE
     Dosage: 40 MILLIGRAM, BID
     Route: 065
     Dates: start: 202109
  42. FUROSEMIDE [Suspect]
     Active Substance: FUROSEMIDE
     Dosage: 40 MILLIGRAM, BID
     Route: 065
     Dates: start: 20211112
  43. NYSTATIN [Suspect]
     Active Substance: NYSTATIN
     Indication: Product used for unknown indication
     Route: 065

REACTIONS (16)
  - Cardiogenic shock [Unknown]
  - Cardiomyopathy [Unknown]
  - Pneumonia [Unknown]
  - Pulmonary congestion [Unknown]
  - Atrial thrombosis [Unknown]
  - Urinary tract infection [Unknown]
  - Congestive cardiomyopathy [Unknown]
  - Sinus tachycardia [Unknown]
  - Cardiac failure [Unknown]
  - Myopathy [Unknown]
  - Ventricular arrhythmia [Unknown]
  - Atrial fibrillation [Unknown]
  - Cardiac failure chronic [Unknown]
  - Chronic kidney disease [Unknown]
  - Low cardiac output syndrome [Unknown]
  - Dyskinesia [Unknown]

NARRATIVE: CASE EVENT DATE: 20190901
